FAERS Safety Report 10342556 (Version 1)
Quarter: 2014Q3

REPORT INFORMATION
  Report Type: Report from Study
  Country: US (occurrence: US)
  Receive Date: 20140725
  Receipt Date: 20140725
  Transmission Date: 20150326
  Serious: Yes (Other)
  Sender: FDA-Public Use
  Company Number: US-SA-2014SA097799

PATIENT
  Sex: Female

DRUGS (2)
  1. APIDRA [Suspect]
     Active Substance: INSULIN GLULISINE
     Indication: DIABETES MELLITUS
     Route: 065
  2. LANTUS [Suspect]
     Active Substance: INSULIN GLARGINE
     Indication: DIABETES MELLITUS
     Route: 065

REACTIONS (1)
  - Diverticulitis [Recovering/Resolving]
